FAERS Safety Report 16131274 (Version 10)
Quarter: 2021Q1

REPORT INFORMATION
  Report Type: Report from Study
  Country: US (occurrence: US)
  Receive Date: 20190328
  Receipt Date: 20210206
  Transmission Date: 20210419
  Serious: Yes (Death, Hospitalization, Other)
  Sender: FDA-Public Use
  Company Number: US-GILEAD-2018-0344467

PATIENT
  Age: 69 Year
  Sex: Female
  Weight: 51.9 kg

DRUGS (44)
  1. FLUDARABINE [Suspect]
     Active Substance: FLUDARABINE PHOSPHATE
     Indication: BONE MARROW CONDITIONING REGIMEN
     Dosage: ^30,^ QD
     Route: 042
     Dates: start: 20170824, end: 20170826
  2. POSACONAZOLE [Concomitant]
     Active Substance: POSACONAZOLE
  3. IMODIUM [Concomitant]
     Active Substance: LOPERAMIDE HYDROCHLORIDE
  4. IMMUNE GLOBULIN IV [Concomitant]
     Active Substance: HUMAN IMMUNOGLOBULIN G
     Dosage: 25,G,MONTHLY
     Route: 041
     Dates: start: 20170901
  5. NITAZOXANIDE [Concomitant]
     Active Substance: NITAZOXANIDE
  6. KEPPRA [Concomitant]
     Active Substance: LEVETIRACETAM
     Dosage: 750,MG,TWICE DAILY
     Route: 048
     Dates: start: 20170829
  7. BENZONATATE. [Concomitant]
     Active Substance: BENZONATATE
     Dosage: 100,MG,AS NECESSARY
     Route: 048
     Dates: start: 20160506
  8. MELATONIN [Concomitant]
     Active Substance: MELATONIN
  9. CYCLOPHOSPHAMIDE. [Suspect]
     Active Substance: CYCLOPHOSPHAMIDE
     Indication: BONE MARROW CONDITIONING REGIMEN
     Dosage: ^500,^ QD
     Route: 042
     Dates: start: 20170824, end: 20170826
  10. BOVINE ANTI?ROTAVIRUS IMMUNOGLOBULIN [Concomitant]
  11. CALCIUM CARBONATE. [Concomitant]
     Active Substance: CALCIUM CARBONATE
  12. ALLOPURINOL. [Concomitant]
     Active Substance: ALLOPURINOL
  13. DOXEPIN HYDROCHLORIDE. [Concomitant]
     Active Substance: DOXEPIN HYDROCHLORIDE
  14. DOCUSATE SODIUM. [Concomitant]
     Active Substance: DOCUSATE SODIUM
  15. AXICABTAGENE CILOLEUCEL [Suspect]
     Active Substance: AXICABTAGENE CILOLEUCEL
     Indication: B-CELL LYMPHOMA
     Dosage: 68 ML, ONCE
     Route: 042
     Dates: start: 20170829, end: 20170829
  16. VALTREX [Concomitant]
     Active Substance: VALACYCLOVIR HYDROCHLORIDE
     Dosage: 500,MG,DAILY
     Route: 048
     Dates: start: 20170906
  17. ONDANSETRON [Concomitant]
     Active Substance: ONDANSETRON
  18. MONTELUKAST SODIUM. [Concomitant]
     Active Substance: MONTELUKAST SODIUM
  19. HEPARIN [Concomitant]
     Active Substance: HEPARIN SODIUM
     Dosage: 2,ML,AS NECESSARY
     Route: 041
     Dates: start: 20170823
  20. SIMETHICONE (DIMETHICONE) [Concomitant]
     Active Substance: DIMETHICONE
  21. LEVAQUIN [Concomitant]
     Active Substance: LEVOFLOXACIN
     Dosage: 500 MG, QD
     Route: 048
     Dates: start: 20190527, end: 20190602
  22. ZYRTEC [Concomitant]
     Active Substance: CETIRIZINE HYDROCHLORIDE
     Dosage: 1,OTHER,DAILY
     Route: 048
     Dates: start: 20170825
  23. CHOLESTYRAMINE. [Concomitant]
     Active Substance: CHOLESTYRAMINE
  24. SANDOSTATIN [Concomitant]
     Active Substance: OCTREOTIDE ACETATE
  25. VITAMIN B12 [VITAMIN B12 NOS] [Concomitant]
     Active Substance: CYANOCOBALAMIN
     Dosage: 100,UG,DAILY
     Route: 048
     Dates: start: 20170825
  26. MAGNESIUM OXIDE. [Concomitant]
     Active Substance: MAGNESIUM OXIDE
     Dosage: 400,MG,DAILY
     Route: 048
     Dates: start: 20171130
  27. SENOKOT [Concomitant]
     Active Substance: SENNOSIDES
     Dosage: 1,OTHER,AS NECESSARY
     Route: 048
     Dates: start: 20170927
  28. ATOVAQUONE. [Concomitant]
     Active Substance: ATOVAQUONE
  29. LOMOTIL [Concomitant]
     Active Substance: ATROPINE SULFATE\DIPHENOXYLATE HYDROCHLORIDE
  30. BENZONATATE. [Concomitant]
     Active Substance: BENZONATATE
     Dosage: 100,MG,DAILY
     Route: 048
     Dates: start: 20170826
  31. PEPCID [Concomitant]
     Active Substance: FAMOTIDINE
     Dosage: 20,MG,TWICE DAILY
     Route: 048
     Dates: start: 20170825
  32. OXYCODONE HYDROCHLORIDE. [Concomitant]
     Active Substance: OXYCODONE HYDROCHLORIDE
  33. PROCHLORPERAZINE EDISYLATE. [Concomitant]
     Active Substance: PROCHLORPERAZINE EDISYLATE
  34. METRONIDAZOLE. [Concomitant]
     Active Substance: METRONIDAZOLE
     Dosage: 500,MG,THREE TIMES DAILY
     Route: 048
     Dates: start: 20171130
  35. METRONIDAZOLE. [Concomitant]
     Active Substance: METRONIDAZOLE
     Dosage: 500,MG,Q8HRS
     Route: 048
     Dates: start: 20190827
  36. AMOXICILLIN. [Concomitant]
     Active Substance: AMOXICILLIN
     Dosage: UNK
     Route: 048
     Dates: start: 20190603, end: 20190612
  37. LIALDA [Concomitant]
     Active Substance: MESALAMINE
  38. POTASSIUM CHLORIDE. [Concomitant]
     Active Substance: POTASSIUM CHLORIDE
  39. TRAMADOL. [Concomitant]
     Active Substance: TRAMADOL
     Dosage: 5,MG,AS NECESSARY
     Route: 048
     Dates: start: 20170927
  40. MESNA. [Suspect]
     Active Substance: MESNA
     Indication: PROPHYLAXIS
     Dosage: ^500^
     Route: 042
     Dates: start: 20170824, end: 20170827
  41. IMMUNOGLOBULIN G HUMAN [Concomitant]
     Active Substance: HUMAN IMMUNOGLOBULIN G
     Route: 048
  42. COLECALCIFEROL [Concomitant]
     Active Substance: CHOLECALCIFEROL
  43. ACETAMINOPHEN. [Concomitant]
     Active Substance: ACETAMINOPHEN
     Dosage: 650,MG,AS NECESSARY
     Route: 048
     Dates: start: 20170829
  44. PEGFILGRASTIM [Concomitant]
     Active Substance: PEGFILGRASTIM
     Dosage: 6,MG,MONTHLY
     Route: 058
     Dates: start: 20171111

REACTIONS (6)
  - Staphylococcal infection [Recovered/Resolved]
  - Pneumonia [Recovered/Resolved]
  - Weight decreased [Recovered/Resolved]
  - Colitis [Recovered/Resolved]
  - Sepsis [Fatal]
  - Pulmonary oedema [Recovered/Resolved]

NARRATIVE: CASE EVENT DATE: 20170827
